FAERS Safety Report 4734041-1 (Version None)
Quarter: 2005Q3

REPORT INFORMATION
  Report Type: 
  Country: None (occurrence: None)
  Receive Date: 20050801
  Receipt Date: 20040825
  Transmission Date: 20060218
  Serious: Yes (Hospitalization)
  Sender: FDA-Public Use
  Company Number: 208657

PATIENT
  Age: 31 Year
  Sex: Female

DRUGS (1)
  1. HERCEPTIN [Suspect]
     Indication: BREAST CANCER
     Dosage: 230 MG, SINGLE, INTRAVENOUS
     Route: 042
     Dates: start: 20040825

REACTIONS (1)
  - INFUSION RELATED REACTION [None]
